FAERS Safety Report 8793810 (Version 2)
Quarter: 2012Q4

REPORT INFORMATION
  Report Type: Report from Study
  Country: JP (occurrence: JP)
  Receive Date: 20120917
  Receipt Date: 20121128
  Transmission Date: 20130627
  Serious: Yes (Other)
  Sender: FDA-Public Use
  Company Number: JP-VERTEX PHARMACEUTICAL INC.-AE-2012-006842

PATIENT
  Age: 68 Year
  Sex: Male

DRUGS (12)
  1. VX-950 (TELAPREVIR) [Suspect]
     Indication: CHRONIC HEPATITIS C
     Dosage: 2250 mg, qd
     Route: 048
     Dates: start: 20120309, end: 20120322
  2. VX-950 (TELAPREVIR) [Suspect]
     Dosage: 1500 mg, qd
     Route: 048
     Dates: start: 20120323, end: 20120413
  3. PEGINTERFERON ALFA-2B [Suspect]
     Indication: CHRONIC HEPATITIS C
     Dosage: 1.5 ?g/kg, qw
     Route: 058
     Dates: start: 20120309
  4. RIBAVIRIN [Suspect]
     Indication: CHRONIC HEPATITIS C
     Dosage: 800 mg, qd
     Route: 048
     Dates: start: 20120309
  5. RIBAVIRIN [Suspect]
     Dosage: 600 mg, qd
     Route: 048
  6. RIBAVIRIN [Suspect]
     Dosage: 800 mg, qd
     Route: 048
  7. PLAVIX [Concomitant]
     Dosage: 75 mg, qd
     Route: 048
  8. MAINTATE [Concomitant]
     Dosage: 5 mg, qd
     Route: 048
  9. ADALAT CR [Concomitant]
     Dosage: 20 mg, qd
     Route: 048
  10. WARFARIN [Concomitant]
     Dosage: 5.5 mg, qd
     Route: 048
  11. OLMETEC [Concomitant]
     Dosage: 20 mg, qd
     Route: 048
  12. ZYLORIC [Concomitant]
     Dosage: 100 mg, qd
     Route: 048

REACTIONS (1)
  - Blood creatinine increased [Recovered/Resolved]
